FAERS Safety Report 9298386 (Version 1)
Quarter: 2013Q2

REPORT INFORMATION
  Report Type: Spontaneous
  Country: US (occurrence: US)
  Receive Date: 20130520
  Receipt Date: 20130520
  Transmission Date: 20140414
  Serious: Yes (Other)
  Sender: FDA-Public Use
  Company Number: US-PFIZER INC-2013153956

PATIENT
  Age: 56 Year
  Sex: Female

DRUGS (3)
  1. GABAPENTIN [Suspect]
     Dosage: 800 MG, UNK
  2. OXYCONTIN [Suspect]
     Dosage: UNK
  3. LORTAB [Suspect]
     Dosage: UNK

REACTIONS (3)
  - Fall [Unknown]
  - Nerve injury [Unknown]
  - Foot fracture [Unknown]
